APPROVED DRUG PRODUCT: THEOLAIR-SR
Active Ingredient: THEOPHYLLINE
Strength: 250MG
Dosage Form/Route: TABLET, EXTENDED RELEASE;ORAL
Application: A086363 | Product #002
Applicant: 3M PHARMACEUTICALS INC
Approved: Jul 16, 1987 | RLD: No | RS: No | Type: DISCN